FAERS Safety Report 9268910 (Version 3)
Quarter: 2014Q3

REPORT INFORMATION
  Report Type: Spontaneous
  Country: TR (occurrence: TR)
  Receive Date: 20130503
  Receipt Date: 20140709
  Transmission Date: 20150326
  Serious: Yes (Other)
  Sender: FDA-Public Use
  Company Number: TR-AMGEN-TURSP2013005895

PATIENT
  Age: 43 Year
  Sex: Female

DRUGS (2)
  1. ENBREL [Suspect]
     Active Substance: ETANERCEPT
     Dosage: UNK
     Route: 065
     Dates: end: 201403
  2. ENBREL [Suspect]
     Active Substance: ETANERCEPT
     Indication: ANKYLOSING SPONDYLITIS
     Dosage: 50 MG, WEEKLY
     Route: 058
     Dates: start: 20121023, end: 20131029

REACTIONS (16)
  - Hypersensitivity [Recovered/Resolved]
  - Hypertension [Unknown]
  - Cardiac valve disease [Unknown]
  - Varicose vein [Not Recovered/Not Resolved]
  - Influenza [Not Recovered/Not Resolved]
  - Stress [Unknown]
  - Embolism [Not Recovered/Not Resolved]
  - Cyst [Not Recovered/Not Resolved]
  - Headache [Not Recovered/Not Resolved]
  - Heart valve incompetence [Not Recovered/Not Resolved]
  - Feeling abnormal [Unknown]
  - Back pain [Unknown]
  - Injection site erythema [Recovered/Resolved]
  - Leiomyoma [Not Recovered/Not Resolved]
  - Pain in extremity [Unknown]
  - Injection site swelling [Recovered/Resolved]

NARRATIVE: CASE EVENT DATE: 20121120
